FAERS Safety Report 20225855 (Version 2)
Quarter: 2022Q1

REPORT INFORMATION
  Report Type: Spontaneous
  Country: FR (occurrence: FR)
  Receive Date: 20211224
  Receipt Date: 20220218
  Transmission Date: 20220423
  Serious: Yes (Other)
  Sender: FDA-Public Use
  Company Number: FR-SA-SAC20211217000887

PATIENT
  Sex: Male

DRUGS (1)
  1. MYOZYME [Suspect]
     Active Substance: ALGLUCOSIDASE ALFA
     Dosage: 20 MG/KG, QW
     Route: 065
     Dates: start: 200908, end: 202103

REACTIONS (3)
  - Hypoventilation [Unknown]
  - Amyotrophy [Unknown]
  - Off label use [Unknown]

NARRATIVE: CASE EVENT DATE: 20090801
